FAERS Safety Report 7117478-5 (Version None)
Quarter: 2010Q4

REPORT INFORMATION
  Report Type: 
  Country: None (occurrence: None)
  Receive Date: 20101122
  Receipt Date: 20101116
  Transmission Date: 20110411
  Serious: Yes (Other)
  Sender: FDA-Public Use
  Company Number: US-ABBOTT-10P-163-0685727-00

PATIENT
  Sex: Female

DRUGS (8)
  1. HUMIRA [Suspect]
     Indication: PRODUCT USED FOR UNKNOWN INDICATION
     Route: 065
  2. REMICADE [Suspect]
     Indication: PSORIATIC ARTHROPATHY
     Route: 042
  3. METHADONE HCL [Concomitant]
     Indication: PRODUCT USED FOR UNKNOWN INDICATION
  4. ALBUTEROL [Concomitant]
     Indication: ASTHMA
     Route: 065
  5. FLOVENT [Concomitant]
     Indication: ASTHMA
     Route: 065
  6. STOOL SOFTENERS [Concomitant]
     Indication: IRRITABLE BOWEL SYNDROME
     Route: 065
  7. TOPAMAX [Concomitant]
     Indication: MIGRAINE
     Route: 065
  8. IMITREX [Concomitant]
     Indication: MIGRAINE
     Route: 065

REACTIONS (1)
  - VISUAL IMPAIRMENT [None]
